FAERS Safety Report 8383547-5 (Version None)
Quarter: 2012Q2

REPORT INFORMATION
  Report Type: 
  Country: None (occurrence: None)
  Receive Date: 20120524
  Receipt Date: 20120522
  Transmission Date: 20120825
  Serious: Yes (Death)
  Sender: FDA-Public Use
  Company Number: ES-SANOFI-AVENTIS-2012SA036356

PATIENT
  Sex: Male

DRUGS (4)
  1. JEVTANA KIT [Suspect]
     Route: 065
  2. JEVTANA KIT [Suspect]
     Route: 065
  3. JEVTANA KIT [Suspect]
     Route: 065
  4. JEVTANA KIT [Suspect]
     Route: 065
     Dates: start: 20120501, end: 20120501

REACTIONS (1)
  - SUDDEN DEATH [None]
